FAERS Safety Report 18069939 (Version 1)
Quarter: 2020Q3

REPORT INFORMATION
  Report Type: Other
  Country: FR (occurrence: FR)
  Receive Date: 20200727
  Receipt Date: 20200727
  Transmission Date: 20201103
  Serious: Yes (Hospitalization)
  Sender: FDA-Public Use
  Company Number: FR-CELLTRION INC.-2020FR024571

PATIENT

DRUGS (3)
  1. ENDOXAN [Suspect]
     Active Substance: CYCLOPHOSPHAMIDE
     Indication: CHRONIC LYMPHOCYTIC LEUKAEMIA
     Dosage: 1400 MG (1 DAY)
     Route: 041
     Dates: start: 20180412, end: 20180412
  2. TRUXIMA [Suspect]
     Active Substance: RITUXIMAB-ABBS
     Indication: CHRONIC LYMPHOCYTIC LEUKAEMIA
     Dosage: 920 MG (1 DAY)
     Route: 041
     Dates: start: 20180412, end: 20180412
  3. NEOFORDEX [Suspect]
     Active Substance: DEXAMETHASONE ACETATE
     Indication: CHRONIC LYMPHOCYTIC LEUKAEMIA
     Dosage: 12 MG (1 DAY)
     Route: 048
     Dates: start: 20180413, end: 20180418

REACTIONS (2)
  - Febrile bone marrow aplasia [Recovered/Resolved]
  - Product use issue [Unknown]

NARRATIVE: CASE EVENT DATE: 20180420
